FAERS Safety Report 7642379-3 (Version None)
Quarter: 2011Q3

REPORT INFORMATION
  Report Type: 
  Country: None (occurrence: None)
  Receive Date: 20110728
  Receipt Date: 20110718
  Transmission Date: 20111222
  Serious: Yes (Hospitalization)
  Sender: FDA-Public Use
  Company Number: US-BAXTER-2011BH023164

PATIENT
  Age: 57 Year
  Sex: Female

DRUGS (1)
  1. DIANEAL [Suspect]
     Indication: PERITONEAL DIALYSIS
     Route: 033
     Dates: end: 20110701

REACTIONS (5)
  - LYMPHOEDEMA [None]
  - SKIN ULCER [None]
  - BLOOD ALBUMIN DECREASED [None]
  - FLUID OVERLOAD [None]
  - OEDEMA PERIPHERAL [None]
